FAERS Safety Report 21351117 (Version 3)
Quarter: 2025Q3

REPORT INFORMATION
  Report Type: Report from Study
  Country: US (occurrence: US)
  Receive Date: 20220919
  Receipt Date: 20250710
  Transmission Date: 20251021
  Serious: Yes (Death, Other)
  Sender: JAZZ
  Company Number: US-GW PHARMA-2022-US-029927

PATIENT
  Sex: Male

DRUGS (12)
  1. EPIDIOLEX [Suspect]
     Active Substance: CANNABIDIOL
     Indication: Epilepsy
     Dates: start: 20210319
  2. ONFI [Concomitant]
     Active Substance: CLOBAZAM
  3. TOPIRAMATE [Concomitant]
     Active Substance: TOPIRAMATE
  4. CETIRIZINE HYDROCHLORIDE [Concomitant]
     Active Substance: CETIRIZINE HYDROCHLORIDE
  5. BACLOFEN [Concomitant]
     Active Substance: BACLOFEN
  6. CARNITOR [Concomitant]
     Active Substance: LEVOCARNITINE
  7. IBUPROFEN [Concomitant]
     Active Substance: IBUPROFEN
  8. LORAZEPAM [Concomitant]
     Active Substance: LORAZEPAM
  9. MILK OF MAGNESIA [Concomitant]
     Active Substance: MAGNESIUM HYDROXIDE
  10. NYSTATIN [Concomitant]
     Active Substance: NYSTATIN
  11. VITAMIN D3 [Concomitant]
     Active Substance: CHOLECALCIFEROL
  12. ALBUTEROL [Concomitant]
     Active Substance: ALBUTEROL

REACTIONS (1)
  - Death [Fatal]
